FAERS Safety Report 10183204 (Version 4)
Quarter: 2014Q4

REPORT INFORMATION
  Report Type: Spontaneous
  Country: CA (occurrence: None)
  Receive Date: 20140516
  Receipt Date: 20141229
  Transmission Date: 20150528
  Serious: Yes (Other)
  Sender: FDA-Public Use
  Company Number: 2014SA057091

PATIENT
  Sex: Female

DRUGS (1)
  1. GOLD BOND MEDICATED FOOT [Suspect]
     Active Substance: MENTHOL
     Indication: PRURITUS
     Dosage: ONCE, UNKNOWN
     Dates: start: 20140425, end: 20140425

REACTIONS (7)
  - Skin hyperpigmentation [None]
  - Burns second degree [None]
  - Skin lesion [None]
  - Insomnia [None]
  - Burn infection [None]
  - Fear [None]
  - Pain [None]
